FAERS Safety Report 6381615-0 (Version None)
Quarter: 2009Q3

REPORT INFORMATION
  Report Type: 
  Country: None (occurrence: None)
  Receive Date: 20090925
  Receipt Date: 20090912
  Transmission Date: 20100115
  Serious: Yes (Death)
  Sender: FDA-Public Use
  Company Number: MPS1-1000262

PATIENT
  Age: 11 Year
  Sex: Male
  Weight: 19 kg

DRUGS (2)
  1. ALDURAZYME [Suspect]
     Indication: MUCOPOLYSACCHARIDOSIS
     Dosage: 58 MG, QOW ; 29 MG, 1X/W
     Dates: start: 20050112, end: 20081104
  2. ALDURAZYME [Suspect]
     Indication: MUCOPOLYSACCHARIDOSIS
     Dosage: 58 MG, QOW ; 29 MG, 1X/W
     Dates: start: 20081101, end: 20090814

REACTIONS (1)
  - PNEUMONIA [None]
